FAERS Safety Report 10060861 (Version 2)
Quarter: 2014Q2

REPORT INFORMATION
  Report Type: Spontaneous
  Country: US (occurrence: US)
  Receive Date: 20140404
  Receipt Date: 20140509
  Transmission Date: 20141212
  Serious: No
  Sender: FDA-Public Use
  Company Number: US-009507513-1403USA013330

PATIENT
  Age: 56 Year
  Sex: Male

DRUGS (1)
  1. VICTRELIS [Suspect]
     Dosage: 1 DF, TID
     Route: 048
     Dates: start: 20140220

REACTIONS (4)
  - Underdose [Unknown]
  - Dysgeusia [Not Recovered/Not Resolved]
  - Product taste abnormal [Recovered/Resolved]
  - Product quality issue [Recovered/Resolved]
